FAERS Safety Report 17320492 (Version 1)
Quarter: 2020Q1

REPORT INFORMATION
  Report Type: Other
  Country: US (occurrence: US)
  Receive Date: 20200126
  Receipt Date: 20200126
  Transmission Date: 20200409
  Serious: No
  Sender: FDA-Public Use
  Company Number: US-ACORDA-ACO_157551_2019

PATIENT
  Age: 81 Year
  Sex: Female

DRUGS (1)
  1. AMPYRA [Suspect]
     Active Substance: DALFAMPRIDINE
     Indication: MULTIPLE SCLEROSIS
     Dosage: 10 MG, BID (8AM AND 8PM)
     Route: 048
     Dates: start: 20190131

REACTIONS (1)
  - Insomnia [Unknown]

NARRATIVE: CASE EVENT DATE: 201902
